FAERS Safety Report 9905374 (Version 1)
Quarter: 2014Q1

REPORT INFORMATION
  Report Type: Report from Study
  Country: ES (occurrence: ES)
  Receive Date: 20140218
  Receipt Date: 20140218
  Transmission Date: 20141002
  Serious: Yes (Hospitalization)
  Sender: FDA-Public Use
  Company Number: ES-PFIZER INC-2014042387

PATIENT
  Age: 63 Year
  Sex: Female

DRUGS (11)
  1. ALDACTONE [Suspect]
     Indication: HEPATIC CIRRHOSIS
     Dosage: 100 MG, 1X/DAY
     Route: 048
     Dates: start: 201203, end: 20130420
  2. SEGURIL [Interacting]
     Indication: HEPATIC CIRRHOSIS
     Dosage: 40 MG, 1X/DAY
     Route: 048
     Dates: start: 201203, end: 20130420
  3. AMLODIPINE [Concomitant]
     Indication: HYPERTENSION
     Dosage: 15 MG, 1X/DAY
     Route: 048
     Dates: start: 201207, end: 20130420
  4. OMEPRAZOL [Concomitant]
     Indication: PROPHYLAXIS
     Dosage: 20 MG, 1X/DAY
     Route: 048
     Dates: start: 200610
  5. LACTITOL MONOHYDRATE [Concomitant]
     Indication: HEPATIC CIRRHOSIS
     Dosage: 30 MG, 1X/DAY
     Route: 048
     Dates: start: 201203, end: 20130420
  6. PROPRANOLOL [Concomitant]
     Indication: PORTAL HYPERTENSION
     Dosage: 40 MG, 1X/DAY
     Route: 048
     Dates: start: 201204
  7. OSTINE [Concomitant]
  8. CYCLOSPORINE [Concomitant]
     Dosage: UNK
  9. FOLIC ACID [Concomitant]
     Dosage: UNK
  10. HIDROXIL [Concomitant]
     Dosage: UNK
  11. FEMARA [Concomitant]
     Dosage: UNK

REACTIONS (5)
  - Cardiomyopathy [Recovered/Resolved]
  - Hepatic encephalopathy [Recovered/Resolved]
  - Drug interaction [Recovered/Resolved]
  - Fall [Unknown]
  - Head injury [Unknown]
